FAERS Safety Report 4972102-2 (Version None)
Quarter: 2006Q2

REPORT INFORMATION
  Report Type: 
  Country: None (occurrence: None)
  Receive Date: 20060412
  Receipt Date: 20060412
  Transmission Date: 20061013
  Serious: Yes (Hospitalization, Other)
  Sender: FDA-Public Use
  Company Number: None

PATIENT
  Age: 51 Year
  Sex: Male
  Weight: 104.3273 kg

DRUGS (1)
  1. GABAPENTIN [Suspect]
     Indication: NEUROPATHY
     Dosage: 1-- 800 MG  3 A DAY PO
     Route: 048
     Dates: start: 20051018, end: 20051116

REACTIONS (2)
  - CONVULSION [None]
  - IMPAIRED WORK ABILITY [None]
